FAERS Safety Report 11371612 (Version 1)
Quarter: 2015Q3

REPORT INFORMATION
  Report Type: Spontaneous
  Country: FR (occurrence: FR)
  Receive Date: 20150812
  Receipt Date: 20150812
  Transmission Date: 20151125
  Serious: Yes (Life-Threatening)
  Sender: FDA-Public Use
  Company Number: FR-FRESENIUS KABI-FK201503841

PATIENT
  Age: 77 Year
  Sex: Male

DRUGS (11)
  1. PROPOFOL 1% FRESENIUS [Suspect]
     Active Substance: PROPOFOL
     Indication: INDUCTION AND MAINTENANCE OF ANAESTHESIA
     Route: 042
     Dates: start: 20150616, end: 20150616
  2. ISOCARD [Concomitant]
     Active Substance: ISOSORBIDE DINITRATE
  3. ACEBUTOLOL [Concomitant]
     Active Substance: ACEBUTOLOL
  4. PARACETAMOL [Concomitant]
     Active Substance: ACETAMINOPHEN
  5. EZETROL [Concomitant]
     Active Substance: EZETIMIBE
  6. CEFAZOLINE MYLAN [Suspect]
     Active Substance: CEFAZOLIN SODIUM
     Indication: ANTIBIOTIC PROPHYLAXIS
     Route: 042
     Dates: start: 20150616
  7. ULTIVA [Suspect]
     Active Substance: REMIFENTANIL HYDROCHLORIDE
     Indication: INDUCTION AND MAINTENANCE OF ANAESTHESIA
     Route: 042
     Dates: start: 20150616, end: 20150616
  8. PRAVASTATIN [Concomitant]
     Active Substance: PRAVASTATIN\PRAVASTATIN SODIUM
  9. EPINITRIL [Concomitant]
     Active Substance: NITROGLYCERIN
  10. LEVEMIR [Concomitant]
     Active Substance: INSULIN DETEMIR
  11. ATRACURIUM HOSPIRA [Suspect]
     Active Substance: ATRACURIUM
     Indication: INDUCTION AND MAINTENANCE OF ANAESTHESIA
     Route: 042
     Dates: start: 20150616, end: 20150616

REACTIONS (1)
  - Anaphylactic shock [Recovered/Resolved]

NARRATIVE: CASE EVENT DATE: 20150616
